FAERS Safety Report 25670267 (Version 2)
Quarter: 2025Q4

REPORT INFORMATION
  Report Type: Spontaneous
  Country: US (occurrence: US)
  Receive Date: 20250812
  Receipt Date: 20251007
  Transmission Date: 20260118
  Serious: No
  Sender: CIPLA
  Company Number: US-CIPLA LTD.-2025US09784

PATIENT

DRUGS (2)
  1. ALBUTEROL [Suspect]
     Active Substance: ALBUTEROL
     Indication: Product used for unknown indication
     Dosage: 180 MICROGRAM, QID (2 PUFFS, 4 TIMES A DAY)
     Dates: start: 20250721, end: 2025
  2. ALBUTEROL [Suspect]
     Active Substance: ALBUTEROL
     Dosage: UNK (NEW INHALER)

REACTIONS (5)
  - Drug dose omission by device [Unknown]
  - Product packaging quantity issue [Unknown]
  - Device mechanical issue [Unknown]
  - Device malfunction [Unknown]
  - Device delivery system issue [Unknown]

NARRATIVE: CASE EVENT DATE: 20250729
